FAERS Safety Report 7229011-8 (Version None)
Quarter: 2011Q1

REPORT INFORMATION
  Report Type: 
  Country: None (occurrence: None)
  Receive Date: 20110117
  Receipt Date: 20110105
  Transmission Date: 20110831
  Serious: Yes (Other)
  Sender: FDA-Public Use
  Company Number: PHHY2011FR02485

PATIENT
  Age: 54 Year
  Sex: Male

DRUGS (6)
  1. PREDNISONE [Suspect]
     Indication: RENAL TRANSPLANT
  2. AMLODIPINE [Concomitant]
     Dosage: 5 MG, DAILY
  3. ATORVASTATIN CALCIUM [Concomitant]
     Dosage: 40 MG, DAILY
  4. CYCLOSPORINE [Suspect]
     Indication: RENAL TRANSPLANT
  5. ASPIRIN [Concomitant]
     Dosage: 100 MG, DAILY
  6. RILMENIDINE [Concomitant]
     Dosage: 1 MG, DAILY

REACTIONS (11)
  - PYREXIA [None]
  - STAPHYLOCOCCAL INFECTION [None]
  - NOCARDIOSIS [None]
  - HEART RATE INCREASED [None]
  - AORTIC ANEURYSM [None]
  - ENTEROBACTER INFECTION [None]
  - SIGMOIDITIS [None]
  - BRAIN ABSCESS [None]
  - URINARY TRACT INFECTION [None]
  - DIVERTICULUM [None]
  - LUNG ABSCESS [None]
